FAERS Safety Report 11131368 (Version 1)
Quarter: 2015Q2

REPORT INFORMATION
  Report Type: Spontaneous
  Country: US (occurrence: None)
  Receive Date: 20150518
  Receipt Date: 20150518
  Transmission Date: 20150821
  Serious: Yes (Other)
  Sender: FDA-Public Use
  Company Number: 2014AP003284

PATIENT
  Age: 68 Year
  Sex: Male

DRUGS (3)
  1. PHENYTOIN (PHENYTOIN) [Suspect]
     Active Substance: PHENYTOIN
     Indication: SEIZURE
  2. LEVODOPA/CARBIDOPA (CARBIDOPA, LEVODOPA) [Concomitant]
  3. LEVETIRACETAM. [Suspect]
     Active Substance: LEVETIRACETAM
     Indication: SEIZURE

REACTIONS (5)
  - Blepharospasm [None]
  - Dry mouth [None]
  - Seizure [None]
  - Grimacing [None]
  - Dystonia [None]
